FAERS Safety Report 4322917-9 (Version None)
Quarter: 2004Q1

REPORT INFORMATION
  Report Type: 
  Country: None (occurrence: None)
  Receive Date: 20040322
  Receipt Date: 20040202
  Transmission Date: 20041129
  Serious: Yes (Other)
  Sender: FDA-Public Use
  Company Number: 2003126978

PATIENT
  Age: 18 Year
  Sex: Female
  Weight: 48.9 kg

DRUGS (14)
  1. VFEND [Suspect]
     Indication: ASPERGILLOSIS
     Dosage: 400 MG (BID), ORAL
     Route: 048
     Dates: start: 20031110, end: 20031226
  2. MERCAPTOPURINE [Concomitant]
  3. METHOTREXATE [Concomitant]
  4. VINCRISTINE [Concomitant]
  5. ACYCLOVIR [Concomitant]
  6. BACTRIM [Concomitant]
  7. PAROXETINE HCL [Concomitant]
  8. ZOLPIDEM TARTRATE [Concomitant]
  9. HYDROMORPHONE HYDROCHLORIDE (HYDROMORPHINE HYDROCHLORIDE) [Concomitant]
  10. DIPHENHYDRAMINE HCL [Concomitant]
  11. METOCLOPRAMIDE [Concomitant]
  12. DRONABINOL (DRONABINOL) [Concomitant]
  13. PREDNISONE [Concomitant]
  14. ACETAMINOPHEN [Concomitant]

REACTIONS (8)
  - DIPLOPIA [None]
  - DIZZINESS [None]
  - HYPERHIDROSIS [None]
  - NAUSEA [None]
  - PHOTOPHOBIA [None]
  - TREMOR [None]
  - VISION BLURRED [None]
  - VOMITING [None]
